FAERS Safety Report 8026581-7 (Version None)
Quarter: 2012Q1

REPORT INFORMATION
  Report Type: 
  Country: None (occurrence: None)
  Receive Date: 20120106
  Receipt Date: 20111229
  Transmission Date: 20120608
  Serious: Yes (Hospitalization)
  Sender: FDA-Public Use
  Company Number: DE-BIOGENIDEC-2011BI048951

PATIENT
  Age: 63 Year
  Sex: Female
  Weight: 75 kg

DRUGS (3)
  1. AVONEX [Suspect]
     Indication: MULTIPLE SCLEROSIS
     Route: 030
     Dates: start: 19990101, end: 20111201
  2. FLU VACCINE [Concomitant]
     Indication: INFLUENZA IMMUNISATION
     Dates: start: 20111201, end: 20111201
  3. AVONEX [Suspect]
     Route: 030
     Dates: start: 20111201

REACTIONS (6)
  - NAUSEA [None]
  - VACCINATION COMPLICATION [None]
  - PYREXIA [None]
  - CHILLS [None]
  - ASTHENIA [None]
  - MOBILITY DECREASED [None]
